FAERS Safety Report 10219628 (Version 1)
Quarter: 2014Q2

REPORT INFORMATION
  Report Type: Spontaneous
  Country: US (occurrence: None)
  Receive Date: 20140604
  Receipt Date: 20140604
  Transmission Date: 20141212
  Serious: Yes (Hospitalization)
  Sender: FDA-Public Use
  Company Number: None

PATIENT
  Age: 55 Year
  Sex: Male

DRUGS (1)
  1. MERCAPTOPURINE 500 MG TAB [Suspect]
     Dosage: 500 MG TAKE 1 1/2 DAILY ORAL
     Route: 048
     Dates: start: 20130218, end: 201405

REACTIONS (1)
  - Drug dose omission [None]
